FAERS Safety Report 11480896 (Version 1)
Quarter: 2015Q3

REPORT INFORMATION
  Report Type: Spontaneous
  Country: DE (occurrence: DE)
  Receive Date: 20150909
  Receipt Date: 20150909
  Transmission Date: 20151125
  Serious: Yes (Life-Threatening, Hospitalization, Disabling)
  Sender: FDA-Public Use
  Company Number: DE-TEVA-592068GER

PATIENT
  Age: 53 Year
  Sex: Male
  Weight: 76 kg

DRUGS (2)
  1. ZANTAC [Suspect]
     Active Substance: RANITIDINE HYDROCHLORIDE
     Indication: PULMONARY SARCOIDOSIS
     Dosage: 100 MILLIGRAM DAILY;
     Route: 048
     Dates: start: 20120118, end: 20131223
  2. PREDNISOLON [Suspect]
     Active Substance: PREDNISOLONE
     Indication: PULMONARY SARCOIDOSIS
     Route: 048
     Dates: start: 20111221, end: 20131223

REACTIONS (2)
  - JC virus test positive [Unknown]
  - Progressive multifocal leukoencephalopathy [Recovering/Resolving]

NARRATIVE: CASE EVENT DATE: 20131210
